FAERS Safety Report 25120002 (Version 2)
Quarter: 2025Q2

REPORT INFORMATION
  Report Type: Spontaneous
  Country: NL (occurrence: NL)
  Receive Date: 20250325
  Receipt Date: 20250408
  Transmission Date: 20250716
  Serious: Yes (Disabling, Other)
  Sender: AMGEN
  Company Number: NL-002147023-NVSC2025NL045845

PATIENT
  Sex: Female

DRUGS (4)
  1. AIMOVIG [Suspect]
     Active Substance: ERENUMAB-AOOE
     Indication: Migraine
     Route: 058
     Dates: start: 20240903
  2. INDOMETHACIN [Concomitant]
     Active Substance: INDOMETHACIN
     Indication: Aura
     Route: 048
     Dates: start: 20250312
  3. INDOMETHACIN [Concomitant]
     Active Substance: INDOMETHACIN
     Route: 065
  4. PANTOPRAZOLE [Concomitant]
     Active Substance: PANTOPRAZOLE
     Indication: Gastrointestinal disorder
     Route: 048
     Dates: start: 20250313

REACTIONS (4)
  - Migraine [Unknown]
  - Hallucination [Not Recovered/Not Resolved]
  - Sleep disorder [Not Recovered/Not Resolved]
  - Abdominal distension [Not Recovered/Not Resolved]

NARRATIVE: CASE EVENT DATE: 20250317
